FAERS Safety Report 5419035-5 (Version None)
Quarter: 2007Q3

REPORT INFORMATION
  Report Type: 
  Country: None (occurrence: None)
  Receive Date: 20070820
  Receipt Date: 20070807
  Transmission Date: 20080115
  Serious: Yes (Other)
  Sender: FDA-Public Use
  Company Number: PHHO2007IL13175

PATIENT
  Sex: Female

DRUGS (1)
  1. ZOMERA [Suspect]
     Indication: OSTEOPOROSIS
     Dosage: 4 MG, UNK
     Route: 042

REACTIONS (2)
  - HYPERPYREXIA [None]
  - INFLAMMATION [None]
